FAERS Safety Report 14465301 (Version 1)
Quarter: 2018Q1

REPORT INFORMATION
  Report Type: Other
  Country: US (occurrence: US)
  Receive Date: 20180130
  Receipt Date: 20180130
  Transmission Date: 20180509
  Serious: No
  Sender: FDA-Public Use
  Company Number: US-ACORDA-ACO_136625_2017

PATIENT
  Age: 48 Year
  Sex: Male

DRUGS (2)
  1. AMPYRA [Suspect]
     Active Substance: DALFAMPRIDINE
     Indication: COORDINATION ABNORMAL
     Dosage: 10 MG, Q 12 HRS
     Route: 048
     Dates: start: 20160328, end: 201703
  2. AMPYRA [Suspect]
     Active Substance: DALFAMPRIDINE
     Indication: MOVEMENT DISORDER
     Dosage: 10 MG, Q 12 HRS
     Route: 048
     Dates: start: 201704

REACTIONS (3)
  - Product use in unapproved indication [Unknown]
  - Therapy cessation [Recovered/Resolved]
  - Pain [Not Recovered/Not Resolved]

NARRATIVE: CASE EVENT DATE: 201703
